FAERS Safety Report 5660929-3 (Version None)
Quarter: 2008Q1

REPORT INFORMATION
  Report Type: 
  Country: None (occurrence: None)
  Receive Date: 20080311
  Receipt Date: 20080228
  Transmission Date: 20080703
  Serious: Yes (Hospitalization)
  Sender: FDA-Public Use
  Company Number: US-PFIZER INC-2008020019

PATIENT
  Sex: Female
  Weight: 54 kg

DRUGS (2)
  1. PHENYTOIN [Suspect]
     Indication: CONVULSION
     Route: 048
     Dates: start: 20060315, end: 20060407
  2. DEPO-PROVERA [Concomitant]

REACTIONS (2)
  - RASH [None]
  - VULVITIS [None]
